FAERS Safety Report 20108848 (Version 1)
Quarter: 2021Q4

REPORT INFORMATION
  Report Type: Spontaneous
  Country: DK (occurrence: DK)
  Receive Date: 20211124
  Receipt Date: 20211124
  Transmission Date: 20220303
  Serious: Yes (Hospitalization)
  Sender: FDA-Public Use
  Company Number: None

PATIENT
  Age: 45 Year
  Sex: Female
  Weight: 62 kg

DRUGS (2)
  1. PACLITAXEL [Suspect]
     Active Substance: PACLITAXEL
     Indication: Ovarian cancer
     Dosage: STRENGTH: 270 MG
     Route: 042
     Dates: start: 20190329, end: 20190329
  2. SODIUM THIOSULFATE [Concomitant]
     Active Substance: SODIUM THIOSULFATE
     Indication: Connective tissue disorder
     Dosage: STRENGTH AND DOSE: UNKNOWN
     Route: 065
     Dates: start: 20181024

REACTIONS (5)
  - Muscle spasms [Recovered/Resolved]
  - Loss of consciousness [Recovered/Resolved]
  - Oropharyngeal discomfort [Recovered/Resolved]
  - Erythema [Recovered/Resolved]
  - Hypotension [Recovered/Resolved]

NARRATIVE: CASE EVENT DATE: 20190329
